FAERS Safety Report 18360877 (Version 3)
Quarter: 2021Q3

REPORT INFORMATION
  Report Type: Spontaneous
  Country: US (occurrence: US)
  Receive Date: 20201008
  Receipt Date: 20210929
  Transmission Date: 20211014
  Serious: Yes (Hospitalization)
  Sender: FDA-Public Use
  Company Number: US-PFIZER INC-2020387453

PATIENT
  Age: 75 Year
  Sex: Female

DRUGS (2)
  1. IBRANCE [Suspect]
     Active Substance: PALBOCICLIB
     Dosage: 75 MG
  2. IBRANCE [Suspect]
     Active Substance: PALBOCICLIB
     Indication: BREAST CANCER FEMALE
     Dosage: 100 MG

REACTIONS (7)
  - Stomatitis [Unknown]
  - Speech disorder [Unknown]
  - Cardiac failure [Unknown]
  - Drug hypersensitivity [Unknown]
  - Throat irritation [Unknown]
  - Lacrimation increased [Unknown]
  - Oral pain [Unknown]
